FAERS Safety Report 23774941 (Version 1)
Quarter: 2024Q2

REPORT INFORMATION
  Report Type: Spontaneous
  Country: US (occurrence: None)
  Receive Date: 20240423
  Receipt Date: 20240423
  Transmission Date: 20240716
  Serious: No
  Sender: FDA-Public Use
  Company Number: None

PATIENT
  Age: 38 Year
  Sex: Female
  Weight: 57.6 kg

DRUGS (3)
  1. CIPROFLOXACIN [Suspect]
     Active Substance: CIPROFLOXACIN
     Indication: Nail infection
     Dosage: OTHER QUANTITY : 14 TABLET(S);?FREQUENCY : TWICE A DAY;?
     Route: 048
     Dates: start: 20240418, end: 20240422
  2. DAILY MULTIVITAMIN [Concomitant]
  3. BIOTIN [Concomitant]
     Active Substance: BIOTIN

REACTIONS (5)
  - Joint stiffness [None]
  - Inflammation [None]
  - Loss of personal independence in daily activities [None]
  - Cognitive disorder [None]
  - Asthenia [None]

NARRATIVE: CASE EVENT DATE: 20240420
